FAERS Safety Report 23421182 (Version 1)
Quarter: 2024Q1

REPORT INFORMATION
  Report Type: Spontaneous
  Country: CN (occurrence: CN)
  Receive Date: 20240119
  Receipt Date: 20240119
  Transmission Date: 20240409
  Serious: Yes (Other)
  Sender: FDA-Public Use
  Company Number: CN-EPICPHARMA-CN-2024EPCLIT00098

PATIENT
  Age: 73 Year
  Sex: Male

DRUGS (2)
  1. KETOROLAC TROMETHAMINE [Suspect]
     Active Substance: KETOROLAC TROMETHAMINE
     Indication: Gouty arthritis
     Dosage: 60MG INJECTION DILUTED IN SODIUM CHLORIDE 0.9% INJECTION IN 250 ML
     Route: 042
  2. SODIUM CHLORIDE [Concomitant]
     Active Substance: SODIUM CHLORIDE
     Indication: Product used for unknown indication
     Route: 042

REACTIONS (3)
  - Peptic ulcer [Recovered/Resolved]
  - Shock haemorrhagic [Recovered/Resolved]
  - Product use in unapproved indication [Unknown]
